FAERS Safety Report 6394114-7 (Version None)
Quarter: 2009Q4

REPORT INFORMATION
  Report Type: 
  Country: None (occurrence: None)
  Receive Date: 20091008
  Receipt Date: 20090928
  Transmission Date: 20100525
  Serious: Yes (Death, Life-Threatening, Hospitalization)
  Sender: FDA-Public Use
  Company Number: FR-PFIZER INC-2009274528

PATIENT
  Age: 80 Year

DRUGS (15)
  1. FLUCONAZOLE [Suspect]
     Indication: CANDIDIASIS
     Dosage: 200 MG, 1X/DAY
     Route: 048
     Dates: start: 20090713, end: 20090717
  2. AUGMENTIN [Concomitant]
     Dosage: 1 G, 3X/DAY
     Route: 042
     Dates: end: 20090721
  3. CITALOPRAM HYDROBROMIDE [Concomitant]
     Dosage: 20 MG, 1X/DAY
     Route: 048
     Dates: end: 20090721
  4. NEXIUM [Concomitant]
     Dosage: 40 MG, 1X/DAY
     Route: 048
     Dates: end: 20090721
  5. SOLU-MEDROL [Concomitant]
     Dosage: UNK
     Route: 042
     Dates: end: 20090721
  6. OXYNORM [Concomitant]
     Route: 048
  7. OXYCONTIN [Concomitant]
     Dosage: 20 MG, 2X/DAY
     Dates: end: 20090721
  8. XANAX [Concomitant]
     Dosage: 0.25 MG, 1X/DAY
     Route: 048
     Dates: end: 20090710
  9. TARCEVA [Concomitant]
     Dosage: 150 MG, 1X/DAY
     Route: 048
     Dates: start: 20090706, end: 20090718
  10. LASILIX [Concomitant]
     Dosage: UNK
     Route: 048
     Dates: end: 20090721
  11. LOVENOX [Concomitant]
     Dosage: UNK
     Route: 058
     Dates: end: 20090708
  12. FORLAX [Concomitant]
     Route: 048
  13. VITAMIN B1 AND B6 [Concomitant]
     Dosage: 1 DF, 3X/DAY
     Route: 048
     Dates: end: 20090721
  14. DIFFU K [Concomitant]
     Dosage: 1 DF, 3X/DAY
     Route: 048
     Dates: end: 20090721
  15. TIORFAN [Concomitant]
     Dosage: 2 DF, 1X/DAY
     Route: 048
     Dates: start: 20090715, end: 20090716

REACTIONS (1)
  - PANCYTOPENIA [None]
